FAERS Safety Report 6385572-2 (Version None)
Quarter: 2009Q4

REPORT INFORMATION
  Report Type: 
  Country: None (occurrence: None)
  Receive Date: 20091002
  Receipt Date: 20090921
  Transmission Date: 20100525
  Serious: Yes (Other)
  Sender: FDA-Public Use
  Company Number: US-PFIZER INC-2009273718

PATIENT
  Sex: Male
  Weight: 93.424 kg

DRUGS (10)
  1. LIPITOR [Suspect]
     Indication: BLOOD CHOLESTEROL INCREASED
     Dosage: UNK, 1X/DAY
     Route: 048
  2. GLIPIZIDE [Suspect]
     Indication: TYPE 2 DIABETES MELLITUS
     Dosage: UNK
  3. CRESTOR [Suspect]
     Indication: BLOOD CHOLESTEROL INCREASED
     Dosage: UNK
  4. AVAPRO [Concomitant]
     Indication: BLOOD PRESSURE INCREASED
     Dosage: UNK
  5. METFORMIN HYDROCHLORIDE [Concomitant]
     Indication: DIABETES MELLITUS
     Dosage: UNK
  6. ACTOS [Concomitant]
     Dosage: UNK
  7. NEXIUM [Concomitant]
     Dosage: UNK
  8. ASPIRIN [Concomitant]
     Dosage: UNK, 1X/DAY
  9. MULTI-VITAMIN [Concomitant]
     Dosage: UNK
  10. ALPHAGAN [Concomitant]
     Dosage: UNK

REACTIONS (9)
  - CONFUSIONAL STATE [None]
  - HEADACHE [None]
  - HIGH DENSITY LIPOPROTEIN DECREASED [None]
  - HYPERTHYROIDISM [None]
  - HYPOGLYCAEMIA [None]
  - PALPITATIONS [None]
  - PANIC ATTACK [None]
  - RHABDOMYOLYSIS [None]
  - WEIGHT DECREASED [None]
